FAERS Safety Report 9036715 (Version 1)
Quarter: 2013Q1

REPORT INFORMATION
  Report Type: Spontaneous
  Country: US (occurrence: None)
  Receive Date: 20130118
  Receipt Date: 20130118
  Transmission Date: 20140127
  Serious: Yes (Other)
  Sender: FDA-Public Use
  Company Number: None

PATIENT
  Age: 64 Year
  Sex: Male

DRUGS (3)
  1. BACTRIM [Suspect]
     Dates: start: 20111212, end: 20120118
  2. CEDIRANIB [Suspect]
     Dates: start: 20111212, end: 20120118
  3. TEMODAR [Suspect]
     Dates: start: 20111212, end: 20120118

REACTIONS (1)
  - Drug-induced liver injury [None]
